FAERS Safety Report 21949473 (Version 1)
Quarter: 2023Q1

REPORT INFORMATION
  Report Type: Spontaneous
  Country: US (occurrence: None)
  Receive Date: 20230202
  Receipt Date: 20230202
  Transmission Date: 20230417
  Serious: Yes (Other)
  Sender: FDA-Public Use
  Company Number: None

PATIENT
  Age: 80 Year
  Sex: Male

DRUGS (1)
  1. IMATINIB [Suspect]
     Active Substance: IMATINIB
     Indication: Gastrointestinal carcinoma
     Dosage: FREQUENCY : DAILY;?
     Route: 048

REACTIONS (2)
  - Eye irritation [None]
  - Myalgia [None]

NARRATIVE: CASE EVENT DATE: 20221029
